FAERS Safety Report 8578214-9 (Version None)
Quarter: 2012Q3

REPORT INFORMATION
  Report Type: 
  Country: None (occurrence: None)
  Receive Date: 20120808
  Receipt Date: 20120803
  Transmission Date: 20120928
  Serious: No
  Sender: FDA-Public Use
  Company Number: US-PFIZER INC-2012189393

PATIENT
  Age: 55 Year
  Sex: Male
  Weight: 81.633 kg

DRUGS (3)
  1. LIPITOR [Concomitant]
     Dosage: UNK
  2. NEURONTIN [Suspect]
     Indication: PAIN
     Dosage: 300 MG, 3X/DAY
     Route: 048
     Dates: start: 20120215, end: 20120101
  3. UROXATRAL [Concomitant]
     Indication: BENIGN PROSTATIC HYPERPLASIA
     Dosage: UNK

REACTIONS (2)
  - MICTURITION FREQUENCY DECREASED [None]
  - THERAPEUTIC RESPONSE UNEXPECTED [None]
